FAERS Safety Report 10168757 (Version 3)
Quarter: 2014Q4

REPORT INFORMATION
  Report Type: Spontaneous
  Country: US (occurrence: None)
  Receive Date: 20140509
  Receipt Date: 20141001
  Transmission Date: 20150528
  Serious: Yes (Disabling, Other)
  Sender: FDA-Public Use
  Company Number: 2014-19396

PATIENT
  Sex: Female

DRUGS (1)
  1. EYLEA [Suspect]
     Active Substance: AFLIBERCEPT
     Indication: AGE-RELATED MACULAR DEGENERATION
     Dates: start: 2013

REACTIONS (10)
  - Blindness transient [None]
  - Visual acuity reduced [None]
  - Vitrectomy [None]
  - Hypopyon [None]
  - Iridocyclitis [None]
  - Eye inflammation [None]
  - Pain [None]
  - Anterior chamber cell [None]
  - Chorioretinitis [None]
  - Cataract [None]

NARRATIVE: CASE EVENT DATE: 20140415
